FAERS Safety Report 21801078 (Version 1)
Quarter: 2022Q4

REPORT INFORMATION
  Report Type: Report from Study
  Country: US (occurrence: US)
  Receive Date: 20221230
  Receipt Date: 20221230
  Transmission Date: 20230112
  Serious: No
  Sender: FDA-Public Use
  Company Number: US-ACORDA-ACO_171240_2021

PATIENT
  Sex: Male

DRUGS (2)
  1. INBRIJA [Suspect]
     Active Substance: LEVODOPA
     Indication: Parkinson^s disease
     Dosage: 2 DOSAGE FORM, PRN (NOT TO EXCEED 5 DOSES A DAY)
  2. INBRIJA [Suspect]
     Active Substance: LEVODOPA
     Indication: On and off phenomenon

REACTIONS (9)
  - Therapeutic product effect variable [Unknown]
  - Incorrect route of product administration [Unknown]
  - Product communication issue [Unknown]
  - Device issue [Unknown]
  - Intentional product use issue [Unknown]
  - Product use complaint [Unknown]
  - Product residue present [Unknown]
  - Product physical issue [Unknown]
  - Product physical issue [Unknown]
